FAERS Safety Report 25437552 (Version 1)
Quarter: 2025Q2

REPORT INFORMATION
  Report Type: Spontaneous
  Country: TH (occurrence: TH)
  Receive Date: 20250616
  Receipt Date: 20250616
  Transmission Date: 20250716
  Serious: Yes (Other)
  Sender: AMGEN
  Company Number: TH-AMGEN-THASP2025115246

PATIENT
  Age: 65 Year
  Sex: Female

DRUGS (1)
  1. BEVACIZUMAB [Suspect]
     Active Substance: BEVACIZUMAB
     Indication: Macular oedema

REACTIONS (6)
  - Panophthalmitis [Recovering/Resolving]
  - Vitreous detachment [Unknown]
  - Acanthamoeba keratitis [Unknown]
  - Blindness unilateral [Unknown]
  - Vitreous opacities [Unknown]
  - Off label use [Unknown]
